FAERS Safety Report 21136657 (Version 1)
Quarter: 2022Q3

REPORT INFORMATION
  Report Type: Spontaneous
  Country: US (occurrence: None)
  Receive Date: 20220726
  Receipt Date: 20220726
  Transmission Date: 20221027
  Serious: Yes (Hospitalization)
  Sender: FDA-Public Use
  Company Number: None

PATIENT
  Age: 37 Year
  Sex: Female
  Weight: 84 kg

DRUGS (1)
  1. SODIUM FERRIC GLUCONATE COMPLEX [Suspect]
     Active Substance: SODIUM FERRIC GLUCONATE COMPLEX
     Indication: Iron deficiency anaemia
     Dosage: FREQUENCY : ONCE;?
     Route: 042
     Dates: start: 20220715, end: 20220715

REACTIONS (10)
  - Infusion related reaction [None]
  - Chest discomfort [None]
  - Dizziness [None]
  - Abdominal discomfort [None]
  - Back disorder [None]
  - Tremor [None]
  - Cardio-respiratory arrest [None]
  - Anxiety [None]
  - Heart rate decreased [None]
  - Pain [None]

NARRATIVE: CASE EVENT DATE: 20220715
